FAERS Safety Report 17423109 (Version 1)
Quarter: 2020Q1

REPORT INFORMATION
  Report Type: Spontaneous
  Country: US (occurrence: US)
  Receive Date: 20200131
  Receipt Date: 20200131
  Transmission Date: 20200409
  Serious: Yes (Hospitalization)
  Sender: FDA-Public Use
  Company Number: None

PATIENT
  Sex: Female

DRUGS (2)
  1. XIFAXAN [Suspect]
     Active Substance: RIFAXIMIN
     Indication: ACUTE HEPATIC FAILURE
     Route: 048
     Dates: start: 20191108
  2. XIFAXAN [Suspect]
     Active Substance: RIFAXIMIN
     Indication: SUBACUTE HEPATIC FAILURE
     Route: 048
     Dates: start: 20191108

REACTIONS (3)
  - Hepatic cirrhosis [None]
  - Gastrointestinal haemorrhage [None]
  - Therapy cessation [None]
